FAERS Safety Report 8603099 (Version 3)
Quarter: 2015Q1

REPORT INFORMATION
  Report Type: Spontaneous
  Country: US (occurrence: US)
  Receive Date: 20120607
  Receipt Date: 20150126
  Transmission Date: 20150721
  Serious: Yes (Hospitalization, Other)
  Sender: FDA-Public Use
  Company Number: US-ASTRAZENECA-2012SE17014

PATIENT
  Age: 83 Year
  Sex: Female
  Weight: 74.8 kg

DRUGS (27)
  1. ATENOLOL. [Suspect]
     Active Substance: ATENOLOL
     Indication: HEART RATE IRREGULAR
     Route: 048
     Dates: start: 20001205
  2. SYMBICORT [Suspect]
     Active Substance: BUDESONIDE\FORMOTEROL FUMARATE DIHYDRATE
     Indication: CHRONIC OBSTRUCTIVE PULMONARY DISEASE
     Route: 055
     Dates: start: 20110429
  3. LEVOTHYROXINE [Concomitant]
     Active Substance: LEVOTHYROXINE
     Indication: THYROID DISORDER
     Route: 048
     Dates: start: 2010
  4. VITAMIN B SUPPLEMENTS [Concomitant]
     Indication: VITAMIN D DEFICIENCY
     Dates: start: 2010
  5. CHOLECALCIFEROL [Concomitant]
     Active Substance: CHOLECALCIFEROL
     Route: 048
  6. SERTRALINE [Concomitant]
     Active Substance: SERTRALINE HYDROCHLORIDE
     Indication: RESTLESS LEGS SYNDROME
     Route: 048
  7. ACETAMINOPHEN. [Concomitant]
     Active Substance: ACETAMINOPHEN
     Route: 048
  8. LOPERAMIDE HCL [Concomitant]
     Active Substance: LOPERAMIDE HYDROCHLORIDE
     Route: 048
  9. SYMBICORT [Suspect]
     Active Substance: BUDESONIDE\FORMOTEROL FUMARATE DIHYDRATE
     Indication: CHRONIC OBSTRUCTIVE PULMONARY DISEASE
     Dosage: 80-4.5 TWO PUFFS BID
     Route: 055
     Dates: start: 20150104
  10. CRESTOR [Suspect]
     Active Substance: ROSUVASTATIN CALCIUM
     Indication: BLOOD CHOLESTEROL INCREASED
     Route: 048
     Dates: start: 2011
  11. DEXILANT [Concomitant]
     Active Substance: DEXLANSOPRAZOLE
     Indication: GASTROOESOPHAGEAL REFLUX DISEASE
     Route: 048
  12. OMEGA-3 FATTY ACIDS [Concomitant]
     Active Substance: OMEGA-3 FATTY ACIDS
     Route: 048
  13. SYMBICORT [Suspect]
     Active Substance: BUDESONIDE\FORMOTEROL FUMARATE DIHYDRATE
     Indication: CHRONIC OBSTRUCTIVE PULMONARY DISEASE
     Dosage: 80/4.5 MCG, 2 PUFFS TWO TIMES A DAY
     Route: 055
     Dates: start: 20120213
  14. LISINOPRIL. [Suspect]
     Active Substance: LISINOPRIL
     Indication: HYPERTENSION
     Route: 048
     Dates: start: 20070925
  15. PLAVIX [Concomitant]
     Active Substance: CLOPIDOGREL BISULFATE
     Indication: ANTICOAGULANT THERAPY
     Route: 048
  16. CALCIUM [Concomitant]
     Active Substance: CALCIUM
     Route: 048
  17. LISINOPRIL. [Suspect]
     Active Substance: LISINOPRIL
     Indication: HYPERTENSION
     Route: 048
     Dates: start: 2009
  18. DEXILANT [Concomitant]
     Active Substance: DEXLANSOPRAZOLE
     Indication: GASTROOESOPHAGEAL REFLUX DISEASE
     Route: 048
  19. ASPIRIN. [Concomitant]
     Active Substance: ASPIRIN
     Route: 048
  20. LEVALBUTEROL [Concomitant]
     Active Substance: LEVALBUTEROL
     Dosage: 0.63 MG/3 ML, EVERY THREE HOURS AS NEEDED
  21. GABAPENTIN. [Concomitant]
     Active Substance: GABAPENTIN
     Indication: MUSCLE SPASMS
     Dates: start: 201409
  22. ZETIA [Concomitant]
     Active Substance: EZETIMIBE
     Indication: BLOOD TRIGLYCERIDES INCREASED
     Route: 048
     Dates: start: 2010
  23. FENOFIBRATE. [Concomitant]
     Active Substance: FENOFIBRATE
     Route: 048
  24. DIPHENHYDRAMINE [Concomitant]
     Active Substance: DIPHENHYDRAMINE
     Route: 048
  25. SERTRALINE [Concomitant]
     Active Substance: SERTRALINE HYDROCHLORIDE
     Indication: SLEEP DISORDER
     Route: 048
  26. PSEUDOEPHEDRINE-CODEINE-GUAIFENESIN [Concomitant]
     Dosage: 5 ML BY MOUTH THREE TIMES A DAY
     Route: 048
  27. GABAPENTIN. [Concomitant]
     Active Substance: GABAPENTIN
     Indication: PAIN IN EXTREMITY
     Dates: start: 201409

REACTIONS (31)
  - Coronary artery disease [Unknown]
  - Cystocele [Unknown]
  - Drug dose omission [Not Recovered/Not Resolved]
  - Cystitis [Not Recovered/Not Resolved]
  - Rhinitis allergic [Unknown]
  - Arthropathy [Unknown]
  - Fall [Unknown]
  - Circumstance or information capable of leading to medication error [Unknown]
  - Angina pectoris [Unknown]
  - Haemorrhage [Unknown]
  - Diverticulum [Unknown]
  - Vitamin D deficiency [Unknown]
  - Hyperlipidaemia [Unknown]
  - Body height decreased [Not Recovered/Not Resolved]
  - Intentional product misuse [Not Recovered/Not Resolved]
  - Hypothyroidism [Unknown]
  - Pelvic pain [Unknown]
  - Chronic obstructive pulmonary disease [Unknown]
  - Gastrooesophageal reflux disease [Unknown]
  - Depression [Unknown]
  - Anaemia [Unknown]
  - Dyspnoea [Unknown]
  - Renal disorder [Not Recovered/Not Resolved]
  - Essential hypertension [Unknown]
  - Cholelithiasis [Unknown]
  - Nasal congestion [Not Recovered/Not Resolved]
  - Bronchopneumonia [Recovered/Resolved]
  - Fatigue [Not Recovered/Not Resolved]
  - Bronchitis chronic [Unknown]
  - Spinal osteoarthritis [Unknown]
  - Weight increased [Not Recovered/Not Resolved]

NARRATIVE: CASE EVENT DATE: 20101102
